FAERS Safety Report 4560691-1 (Version None)
Quarter: 2005Q1

REPORT INFORMATION
  Report Type: 
  Country: None (occurrence: None)
  Receive Date: 20050126
  Receipt Date: 20050117
  Transmission Date: 20050727
  Serious: Yes (Death, Other)
  Sender: FDA-Public Use
  Company Number: GB-JNJFOC-20050103464

PATIENT
  Age: 62 Year
  Sex: Male
  Weight: 70 kg

DRUGS (11)
  1. REMICADE [Suspect]
     Indication: RHEUMATOID ARTHRITIS
     Route: 042
  2. METHOTREXATE [Concomitant]
     Indication: RHEUMATOID ARTHRITIS
     Route: 049
  3. FOLIC ACID [Concomitant]
     Indication: RHEUMATOID ARTHRITIS
     Route: 049
  4. ROFECOXIB [Concomitant]
     Indication: RHEUMATOID ARTHRITIS
     Route: 049
  5. MOVICOL [Concomitant]
     Route: 049
  6. MOVICOL [Concomitant]
     Route: 049
  7. MOVICOL [Concomitant]
     Route: 049
  8. MOVICOL [Concomitant]
     Dosage: AS NECESSARY
     Route: 049
  9. PROCHLORPERAZINE [Concomitant]
     Route: 049
  10. CO-CODAMOL [Concomitant]
     Route: 049
  11. CO-CODAMOL [Concomitant]
     Dosage: 30/500: 2 TABLETS, 4 TIMES PER DAY.
     Route: 049

REACTIONS (1)
  - METASTATIC NEOPLASM [None]
